FAERS Safety Report 8443985-9 (Version None)
Quarter: 2012Q2

REPORT INFORMATION
  Report Type: 
  Country: None (occurrence: None)
  Receive Date: 20120618
  Receipt Date: 20120611
  Transmission Date: 20120825
  Serious: Yes (Hospitalization)
  Sender: FDA-Public Use
  Company Number: PHHY2012FR050587

PATIENT
  Age: 80 Year
  Sex: Female

DRUGS (8)
  1. IRBESARTAN AND HYDROCHLOROTHIAZIDE [Interacting]
     Indication: HYPERTENSION
     Dosage: UNK UKN, UNK
     Route: 048
  2. PANTOPRAZOLE [Concomitant]
  3. VOLTAREN [Suspect]
     Indication: PAIN
     Dosage: UNK UKN, UNK
     Dates: start: 20110101, end: 20120520
  4. RILMENIDINE [Concomitant]
  5. BREXIN [Interacting]
     Indication: ARTHRALGIA
     Dosage: 20 MG, PER DAY
     Dates: start: 20120515, end: 20120520
  6. NEBIVOLOL HCL [Concomitant]
  7. CRESTOR [Concomitant]
  8. ACETAMINOPHEN AND TRAMADOL HCL [Concomitant]
     Indication: ARTHRALGIA
     Dosage: 3 DF PER DAY
     Dates: start: 20120515, end: 20120520

REACTIONS (7)
  - MALAISE [None]
  - HYPERTENSION [None]
  - HEADACHE [None]
  - DRUG INTERACTION [None]
  - HYPERHIDROSIS [None]
  - ACUTE PULMONARY OEDEMA [None]
  - DYSPNOEA [None]
